FAERS Safety Report 25280175 (Version 4)
Quarter: 2025Q3

REPORT INFORMATION
  Report Type: Spontaneous
  Country: US (occurrence: US)
  Receive Date: 20250507
  Receipt Date: 20250716
  Transmission Date: 20251020
  Serious: Yes (Hospitalization, Other)
  Sender: MALLINCKRODT
  Company Number: US-MALLINCKRODT-MNK202502025

PATIENT
  Age: 68 Year
  Sex: Female
  Weight: 144 kg

DRUGS (6)
  1. CORTICOTROPIN [Suspect]
     Active Substance: CORTICOTROPIN
     Indication: Systemic lupus erythematosus
     Route: 030
     Dates: start: 202308
  2. CORTICOTROPIN [Suspect]
     Active Substance: CORTICOTROPIN
     Dates: start: 2025
  3. ASPIRIN [Concomitant]
     Active Substance: ASPIRIN
  4. MELOXICAM [Concomitant]
     Active Substance: MELOXICAM
  5. HYDROXYCHLOROQUINE DIPHOSPHATE [Concomitant]
     Active Substance: HYDROXYCHLOROQUINE DIPHOSPHATE
  6. IMURAN [Concomitant]
     Active Substance: AZATHIOPRINE

REACTIONS (14)
  - Spinal operation [Recovering/Resolving]
  - Ankle fracture [Recovered/Resolved]
  - Fall [Unknown]
  - Rheumatoid arthritis [Unknown]
  - Systemic lupus erythematosus [Unknown]
  - Urinary retention [Unknown]
  - Muscle spasms [Unknown]
  - Musculoskeletal discomfort [Unknown]
  - Pain [Unknown]
  - Pyrexia [Unknown]
  - Constipation [Unknown]
  - Blood glucose increased [Recovered/Resolved]
  - Blood potassium decreased [Recovered/Resolved]
  - Therapeutic product effect incomplete [Unknown]

NARRATIVE: CASE EVENT DATE: 20250611
